FAERS Safety Report 9198327 (Version 1)
Quarter: 2013Q1

REPORT INFORMATION
  Report Type: Spontaneous
  Country: US (occurrence: None)
  Receive Date: 20130327
  Receipt Date: 20130327
  Transmission Date: 20140127
  Serious: Yes (Death)
  Sender: FDA-Public Use
  Company Number: None

PATIENT
  Age: 11 Month
  Sex: Male

DRUGS (1)
  1. SYNAGIS 100MG VIAL MEDIMMUNE [Suspect]
     Route: 030
     Dates: start: 20121129, end: 20121228

REACTIONS (1)
  - Death [None]
